FAERS Safety Report 8953240 (Version 1)
Quarter: 2012Q4

REPORT INFORMATION
  Report Type: 
  Country: JP (occurrence: JP)
  Receive Date: 20121206
  Receipt Date: 20121206
  Transmission Date: 20130627
  Serious: Yes (Hospitalization)
  Sender: FDA-Public Use
  Company Number: JP-MSD-2012SP036970

PATIENT
  Age: 62 Year
  Sex: Female
  Weight: 45 kg

DRUGS (27)
  1. PEGINTRON [Suspect]
     Indication: CHRONIC HEPATITIS C
     Dosage: 1.5Microgram/kilogram/qw, daily dose unknown
     Route: 058
     Dates: start: 20120313, end: 20120531
  2. REBETOL [Suspect]
     Indication: CHRONIC HEPATITIS C
     Dosage: 400 mg, qd
     Route: 048
     Dates: start: 20120313, end: 20120320
  3. REBETOL [Suspect]
     Dosage: 200 mg, qd
     Route: 048
     Dates: start: 20120321, end: 20120509
  4. TELAVIC [Suspect]
     Indication: HEPATITIS C
     Dosage: 2250 mg, qd
     Route: 048
     Dates: start: 20120313, end: 20120315
  5. TELAVIC [Suspect]
     Dosage: 1500 mg, qd
     Route: 048
     Dates: start: 20120316, end: 20120531
  6. JUVELA N [Concomitant]
     Indication: HYPERTENSION
     Dosage: 400 mg, QD
     Route: 048
  7. JUVELA N [Concomitant]
     Dosage: 400 mg, once
     Route: 048
  8. GASMOTIN [Concomitant]
     Indication: GASTRIC ULCER
     Dosage: 10 mg, QD
     Route: 048
  9. GASMOTIN [Concomitant]
     Dosage: 10 mg, once
     Route: 048
  10. BLOPRESS [Concomitant]
     Indication: HYPERTENSION
     Dosage: 8 mg, QD
     Route: 048
  11. BLOPRESS [Concomitant]
     Dosage: 8 mg, Once
     Route: 048
  12. NADIC [Concomitant]
     Indication: HYPERTENSION
     Dosage: 15 mg, QD
     Route: 048
  13. NADIC [Concomitant]
     Route: 048
  14. ALDACTONE A [Concomitant]
     Indication: HYPERTENSION
     Dosage: 25 mg, QD
     Route: 048
  15. METALCAPTASE [Concomitant]
     Indication: RHEUMATOID ARTHRITIS
     Dosage: 200 mg, QD
     Route: 048
  16. METALCAPTASE [Concomitant]
     Route: 048
  17. GASTER [Concomitant]
     Indication: GASTRIC ULCER
     Dosage: 40 mg, QD
     Route: 048
  18. GASTER [Concomitant]
     Route: 048
  19. SELBEX [Concomitant]
     Indication: GASTRIC ULCER
     Dosage: 100 mg, QD
     Route: 048
  20. SELBEX [Concomitant]
     Route: 048
  21. LOXONIN [Concomitant]
     Indication: RHEUMATOID ARTHRITIS
     Dosage: daily dose unknown,60mg/day as needed
     Route: 048
     Dates: start: 20120313, end: 20120531
  22. LAC-B [Concomitant]
     Indication: PROPHYLAXIS
     Dosage: FORMULATION: POR
     Route: 048
     Dates: start: 20120316
  23. URINORM [Concomitant]
     Indication: PROPHYLAXIS
     Dosage: 50 mg, qd
     Route: 048
     Dates: start: 20120316
  24. URALYT [Concomitant]
     Indication: PROPHYLAXIS
     Dosage: 3 DF, qd
     Route: 048
     Dates: start: 20120316
  25. PRIMPERAN [Concomitant]
     Indication: PROPHYLAXIS
     Dosage: 3 DF, qd
     Route: 048
     Dates: start: 20120317, end: 20120502
  26. LOPEMIN [Concomitant]
     Indication: PROPHYLAXIS
     Dosage: 1mg/day as needed,daily dose unknown
     Route: 048
     Dates: start: 20120319
  27. AZUNOL (GUAIAZULENE) [Concomitant]
     Dosage: As needed
     Route: 061
     Dates: start: 20120319

REACTIONS (3)
  - Diarrhoea [Recovering/Resolving]
  - White blood cell count decreased [Recovering/Resolving]
  - Haemoglobin decreased [Recovered/Resolved]
